FAERS Safety Report 17542395 (Version 1)
Quarter: 2020Q1

REPORT INFORMATION
  Report Type: Report from Study
  Country: BR (occurrence: BR)
  Receive Date: 20200314
  Receipt Date: 20200314
  Transmission Date: 20200409
  Serious: Yes (Death, Hospitalization, Other)
  Sender: FDA-Public Use
  Company Number: BR-TAKEDA-2020TUS014171

PATIENT
  Age: 28 Year
  Sex: Female

DRUGS (1)
  1. VEDOLIZUMAB [Suspect]
     Active Substance: VEDOLIZUMAB
     Indication: COLITIS ULCERATIVE
     Dosage: UNK
     Route: 042
     Dates: start: 20180830, end: 20191030

REACTIONS (6)
  - Colonoscopy abnormal [Unknown]
  - Colitis ulcerative [Fatal]
  - Metastases to liver [Fatal]
  - Metastases to peritoneum [Fatal]
  - Metastases to gastrointestinal tract [Fatal]
  - Malaise [Unknown]

NARRATIVE: CASE EVENT DATE: 201907
